FAERS Safety Report 9789028 (Version 3)
Quarter: 2014Q2

REPORT INFORMATION
  Report Type: Report from Study
  Country: JP (occurrence: JP)
  Receive Date: 20131230
  Receipt Date: 20140410
  Transmission Date: 20141212
  Serious: Yes (Other)
  Sender: FDA-Public Use
  Company Number: JP-ABBVIE-13P-087-1183813-00

PATIENT
  Age: 55 Year
  Sex: Female

DRUGS (12)
  1. LIPACREON [Suspect]
     Indication: PANCREATIC INSUFFICIENCY
     Route: 048
     Dates: start: 20130517
  2. URSODEOXYCHOLIC ACID [Concomitant]
     Indication: PRODUCT USED FOR UNKNOWN INDICATION
     Route: 048
     Dates: end: 20131104
  3. URSODEOXYCHOLIC ACID [Concomitant]
     Dates: start: 20131105
  4. AMLODIPINE BESILATE [Concomitant]
     Indication: HYPERTENSION
     Route: 048
  5. INSULIN GLARGINE [Concomitant]
     Indication: PRODUCT USED FOR UNKNOWN INDICATION
  6. PIOGLITAZONE HYDROCHLORIDE [Concomitant]
     Indication: PRODUCT USED FOR UNKNOWN INDICATION
     Route: 048
  7. ATENOLOL [Concomitant]
     Indication: PANCREATIC INSUFFICIENCY
     Route: 048
     Dates: start: 20130809, end: 20130902
  8. ATENOLOL [Concomitant]
     Indication: HYPERTENSION
     Dates: start: 20130903
  9. ATENOLOL [Concomitant]
     Indication: PRODUCT USED FOR UNKNOWN INDICATION
  10. RABEPRAZOLE SODIUM [Concomitant]
     Indication: GASTRIN SECRETION DISORDER
     Route: 048
     Dates: start: 20131004
  11. CEFMETAZOLE SODIUM [Concomitant]
     Indication: WHITE BLOOD CELL COUNT INCREASED
     Route: 042
     Dates: end: 20131119
  12. AMOXICILLIN TRIHYDRATE [Concomitant]
     Indication: WHITE BLOOD CELL COUNT INCREASED
     Dosage: TWO VIALS
     Route: 042
     Dates: end: 20131119

REACTIONS (2)
  - Protein total decreased [Recovering/Resolving]
  - Low density lipoprotein increased [Recovering/Resolving]
